FAERS Safety Report 7372852-7 (Version None)
Quarter: 2011Q1

REPORT INFORMATION
  Report Type: 
  Country: None (occurrence: None)
  Receive Date: 20110324
  Receipt Date: 20110321
  Transmission Date: 20110831
  Serious: Yes (Other)
  Sender: FDA-Public Use
  Company Number: EC-PFIZER INC-2011062959

PATIENT
  Sex: Female

DRUGS (2)
  1. MICROSER [Suspect]
     Dosage: UNK
     Route: 048
  2. ATORVASTATIN CALCIUM [Suspect]
     Dosage: UNK
     Route: 048

REACTIONS (4)
  - OCULAR VASCULAR DISORDER [None]
  - HEADACHE [None]
  - CHEST PAIN [None]
  - ABDOMINAL PAIN UPPER [None]
